FAERS Safety Report 6931520-3 (Version None)
Quarter: 2010Q3

REPORT INFORMATION
  Report Type: 
  Country: None (occurrence: None)
  Receive Date: 20100819
  Receipt Date: 20100811
  Transmission Date: 20110219
  Serious: No
  Sender: FDA-Public Use
  Company Number: US-US-EMD SERONO, INC.-430017K08USA

PATIENT
  Sex: Female
  Weight: 82 kg

DRUGS (5)
  1. NOVANTRONE [Suspect]
     Indication: MULTIPLE SCLEROSIS
     Route: 042
     Dates: start: 20050101, end: 20060101
  2. NOVANTRONE [Suspect]
     Dates: start: 20081031, end: 20100101
  3. REBIF [Suspect]
     Indication: MULTIPLE SCLEROSIS
     Route: 058
     Dates: start: 20070501, end: 20081027
  4. NEURONTIN [Concomitant]
     Indication: NEURALGIA
     Route: 065
  5. THYROLAR [Concomitant]
     Indication: THYROID DISORDER
     Route: 065

REACTIONS (7)
  - CARDIAC DISORDER [None]
  - CARDIAC FAILURE CONGESTIVE [None]
  - CARDIOMEGALY [None]
  - CONDUCTION DISORDER [None]
  - HEART RATE INCREASED [None]
  - RED BLOOD CELL COUNT DECREASED [None]
  - WHITE BLOOD CELL COUNT DECREASED [None]
